FAERS Safety Report 22173457 (Version 1)
Quarter: 2023Q2

REPORT INFORMATION
  Report Type: Spontaneous
  Country: US (occurrence: US)
  Receive Date: 20230404
  Receipt Date: 20230404
  Transmission Date: 20230722
  Serious: No
  Sender: FDA-Public Use
  Company Number: US-ELI_LILLY_AND_COMPANY-US202304000839

PATIENT
  Sex: Female

DRUGS (1)
  1. FORTEO [Suspect]
     Active Substance: TERIPARATIDE
     Indication: Product used for unknown indication
     Dosage: UNK UNK, UNKNOWN
     Route: 065
     Dates: start: 20230128

REACTIONS (7)
  - Malaise [Unknown]
  - Feeling abnormal [Unknown]
  - Intentional product use issue [Unknown]
  - Decreased appetite [Unknown]
  - Visual impairment [Unknown]
  - Fatigue [Unknown]
  - Nausea [Unknown]
